FAERS Safety Report 10815207 (Version 1)
Quarter: 2015Q1

REPORT INFORMATION
  Report Type: Report from Study
  Country: NL (occurrence: NL)
  Receive Date: 20150218
  Receipt Date: 20150218
  Transmission Date: 20150721
  Serious: Yes (Death)
  Sender: FDA-Public Use
  Company Number: NL-AMGEN-NLDSL2015014798

PATIENT
  Age: 76 Year
  Sex: Male

DRUGS (1)
  1. ARANESP [Suspect]
     Active Substance: DARBEPOETIN ALFA
     Indication: NEPHROGENIC ANAEMIA
     Dosage: 0.3 ML(100MCG/ML), Q6WK
     Route: 058
     Dates: start: 20110526, end: 20150216

REACTIONS (1)
  - Death [Fatal]

NARRATIVE: CASE EVENT DATE: 20150216
